FAERS Safety Report 21280562 (Version 1)
Quarter: 2022Q3

REPORT INFORMATION
  Report Type: Spontaneous
  Country: NO (occurrence: NO)
  Receive Date: 20220901
  Receipt Date: 20220901
  Transmission Date: 20221027
  Serious: No
  Sender: FDA-Public Use
  Company Number: None

PATIENT

DRUGS (1)
  1. SOTROVIMAB [Suspect]
     Active Substance: SOTROVIMAB
     Indication: COVID-19
     Dosage: UNK
     Route: 042
     Dates: start: 20220225, end: 20220225

REACTIONS (6)
  - Oral pain [Unknown]
  - Tongue discolouration [Unknown]
  - Oral fungal infection [Not Recovered/Not Resolved]
  - Pain [Unknown]
  - Glossodynia [Unknown]
  - Tongue erythema [Unknown]

NARRATIVE: CASE EVENT DATE: 20220302
